FAERS Safety Report 6827217-0 (Version None)
Quarter: 2010Q3

REPORT INFORMATION
  Report Type: 
  Country: None (occurrence: None)
  Receive Date: 20100709
  Receipt Date: 20091202
  Transmission Date: 20110219
  Serious: Yes (Hospitalization)
  Sender: FDA-Public Use
  Company Number: JP-SANOFI-AVENTIS-F01200901009

PATIENT
  Age: 65 Year
  Sex: Female
  Weight: 56 kg

DRUGS (8)
  1. CLOPIDOGREL BISULFATE [Suspect]
     Indication: ACUTE CORONARY SYNDROME
     Dosage: DOSE TEXT: STARTING DOSE
     Route: 048
     Dates: start: 20090605, end: 20090605
  2. CLOPIDOGREL BISULFATE [Suspect]
     Dosage: DOSE TEXT: MAINTENANCE DOSE
     Route: 048
     Dates: start: 20090606
  3. ASPIRIN [Concomitant]
     Route: 048
     Dates: start: 20090605
  4. HEPARIN [Concomitant]
     Route: 042
     Dates: start: 20090605, end: 20090608
  5. LIPITOR [Concomitant]
     Route: 048
     Dates: start: 20090606
  6. LASIX [Concomitant]
     Route: 048
     Dates: start: 20090606
  7. CONIEL [Concomitant]
     Route: 048
     Dates: start: 20090624
  8. MAGNESIUM OXIDE [Concomitant]
     Indication: CONSTIPATION PROPHYLAXIS
     Route: 048
     Dates: start: 20090605

REACTIONS (1)
  - ANAEMIA [None]
